FAERS Safety Report 6677802-4 (Version None)
Quarter: 2010Q2

REPORT INFORMATION
  Report Type: 
  Country: None (occurrence: None)
  Receive Date: 20100412
  Receipt Date: 20100324
  Transmission Date: 20101027
  Serious: No
  Sender: FDA-Public Use
  Company Number: US-ALEXION-A201000401

PATIENT
  Sex: Male

DRUGS (7)
  1. SOLIRIS [Suspect]
     Indication: PAROXYSMAL NOCTURNAL HAEMOGLOBINURIA
     Dosage: 600 MG, QW X 4 WEEKS
     Route: 042
     Dates: start: 20090825, end: 20090901
  2. SOLIRIS [Suspect]
     Dosage: 900 MG, Q2W
     Route: 042
     Dates: start: 20090922
  3. CYCLOSPORINE [Concomitant]
     Dosage: 200 MG, BID
  4. CYCLOSPORINE [Concomitant]
     Dosage: 125 MG, QD
  5. FLOMAX [Concomitant]
     Dosage: 4 MG, QD
  6. PRAVASTATIN [Concomitant]
     Dosage: 20 MG, QD
  7. FOLIC ACID [Concomitant]
     Dosage: 1 MG, QD

REACTIONS (2)
  - INFUSION SITE HAEMATOMA [None]
  - INFUSION SITE HAEMORRHAGE [None]
